FAERS Safety Report 24259209 (Version 2)
Quarter: 2024Q3

REPORT INFORMATION
  Report Type: Spontaneous
  Country: ES (occurrence: ES)
  Receive Date: 20240828
  Receipt Date: 20240913
  Transmission Date: 20241016
  Serious: Yes (Death, Life-Threatening, Hospitalization, Other)
  Sender: PURDUE
  Company Number: ES-AEMPS-1557724

PATIENT
  Age: 56 Year
  Sex: Male

DRUGS (15)
  1. MORPHINE [Suspect]
     Active Substance: MORPHINE
     Indication: Product used for unknown indication
     Dosage: 20 MILLIGRAM, Q4H (20 MILLIGRAM, Q4HR )
     Route: 048
     Dates: start: 20240306, end: 20240320
  2. MORPHINE [Suspect]
     Active Substance: MORPHINE
     Dosage: 20 MILLIGRAM (1/4 HOUR) (12 TABLETS)
     Route: 048
     Dates: start: 20240306, end: 20240320
  3. SERTRALINE HYDROCHLORIDE [Suspect]
     Active Substance: SERTRALINE HYDROCHLORIDE
     Indication: Product used for unknown indication
     Dosage: 100 MILLIGRAM, QD
     Route: 048
     Dates: start: 20230404, end: 20240411
  4. SERTRALINE HYDROCHLORIDE [Suspect]
     Active Substance: SERTRALINE HYDROCHLORIDE
     Dosage: 100 MILLIGRAM (1/24 HOURS) (60 TABLETS)
     Route: 048
     Dates: start: 20230404, end: 20240411
  5. FENTANYL [Suspect]
     Active Substance: FENTANYL\FENTANYL CITRATE
     Indication: Product used for unknown indication
     Dosage: 75 MICROGRAM, Q1HR
     Route: 062
     Dates: start: 20240216, end: 20240320
  6. FENTANYL [Suspect]
     Active Substance: FENTANYL\FENTANYL CITRATE
     Dosage: 75 MICROGRAM (1/72 HOURS) (5 PATCH)
     Route: 062
     Dates: start: 20240216, end: 20240320
  7. MORPHINE [Suspect]
     Active Substance: MORPHINE
     Indication: Product used for unknown indication
     Dosage: UNK
     Route: 042
     Dates: start: 202403, end: 20240411
  8. MORPHINE [Suspect]
     Active Substance: MORPHINE
     Dosage: DOSAGE ADJUSTMENT ACCORDING TO PAIN DURING HOSPITAL ADMISSION
     Route: 042
     Dates: start: 202403, end: 20240411
  9. LOSARTAN POTASSIUM [Concomitant]
     Active Substance: LOSARTAN POTASSIUM
     Indication: Product used for unknown indication
     Dosage: 50 MILLIGRAM, (1/24 HOURS) (28 TABLETS)
     Route: 048
     Dates: start: 20230315, end: 20240411
  10. CERTICAN [Concomitant]
     Active Substance: EVEROLIMUS
     Indication: Product used for unknown indication
     Dosage: 75 MILLIGRAM (2/12 HOURS) (60 TABLETS)
     Route: 048
     Dates: start: 20230322, end: 20240411
  11. ESOMEPRAZOLE SODIUM [Concomitant]
     Active Substance: ESOMEPRAZOLE SODIUM
     Indication: Product used for unknown indication
     Dosage: 20 MILLIGRAM, (1/24 HOURS) (56 CAPSULES (BLISTER))
     Route: 048
     Dates: start: 20240119, end: 20240411
  12. ENVARSUS XR [Concomitant]
     Active Substance: TACROLIMUS
     Indication: Product used for unknown indication
     Dosage: 1 MILLIGRAM (3/24 HOURS) (60 TABLETS)
     Route: 048
     Dates: start: 20230322, end: 20240411
  13. ASPIRIN [Concomitant]
     Active Substance: ASPIRIN
     Indication: Product used for unknown indication
     Dosage: 100 MILLIGRAM (1/24 HOURS) (30 TABLETS)
     Route: 048
     Dates: start: 20230315, end: 20240411
  14. CITALOPRAM MABO [Concomitant]
     Indication: Product used for unknown indication
     Dosage: 1/24 HOURS (28-TABLETS)
     Route: 048
     Dates: start: 20230619, end: 20240411
  15. CITALOPRAM MABO [Concomitant]
     Indication: Product used for unknown indication
     Dosage: UNK
     Route: 065

REACTIONS (2)
  - Hepatic encephalopathy [Fatal]
  - Constipation [Fatal]

NARRATIVE: CASE EVENT DATE: 20240314
